FAERS Safety Report 20110858 (Version 1)
Quarter: 2021Q4

REPORT INFORMATION
  Report Type: Spontaneous
  Country: AU (occurrence: AU)
  Receive Date: 20211124
  Receipt Date: 20211124
  Transmission Date: 20220303
  Serious: Yes (Hospitalization, Other)
  Sender: FDA-Public Use
  Company Number: AU-BoehringerIngelheim-2021-BI-140310

PATIENT
  Age: 72 Year
  Sex: Female

DRUGS (1)
  1. EMPAGLIFLOZIN\METFORMIN HYDROCHLORIDE [Suspect]
     Active Substance: EMPAGLIFLOZIN\METFORMIN HYDROCHLORIDE
     Indication: Product used for unknown indication
     Dosage: FORM STRENGTH IS 12.5 MG EMPAGLIFLOZIN, 1000MG METFORMIN. UNIT DOSE AND FREQUENCY ARE NOT REPORTED.
     Route: 048

REACTIONS (1)
  - Euglycaemic diabetic ketoacidosis [Recovering/Resolving]
